FAERS Safety Report 15127110 (Version 1)
Quarter: 2018Q3

REPORT INFORMATION
  Report Type: Spontaneous
  Country: US (occurrence: US)
  Receive Date: 20180710
  Receipt Date: 20180710
  Transmission Date: 20181010
  Serious: No
  Sender: FDA-Public Use
  Company Number: US-BAYER-2018-123979

PATIENT
  Age: 57 Year
  Sex: Female

DRUGS (1)
  1. ESTRADIOL. [Suspect]
     Active Substance: ESTRADIOL
     Route: 062

REACTIONS (5)
  - Wrong technique in product usage process [None]
  - Night sweats [Not Recovered/Not Resolved]
  - Off label use [None]
  - Drug dose omission [Not Recovered/Not Resolved]
  - Product adhesion issue [None]

NARRATIVE: CASE EVENT DATE: 201806
